FAERS Safety Report 25304489 (Version 1)
Quarter: 2025Q2

REPORT INFORMATION
  Report Type: Spontaneous
  Country: US (occurrence: None)
  Receive Date: 20250512
  Receipt Date: 20250512
  Transmission Date: 20250716
  Serious: Yes (Hospitalization)
  Sender: FDA-CTU
  Company Number: None

PATIENT
  Age: 76 Year
  Sex: Male
  Weight: 94.5 kg

DRUGS (2)
  1. ELIGARD [Suspect]
     Active Substance: LEUPROLIDE ACETATE
     Indication: Prostate cancer
     Route: 058
     Dates: start: 20230403, end: 20240516
  2. DOCUSATE SODIUM [Concomitant]
     Active Substance: DOCUSATE SODIUM

REACTIONS (2)
  - Confusional state [None]
  - Disorientation [None]

NARRATIVE: CASE EVENT DATE: 20240329
